FAERS Safety Report 9587421 (Version 1)
Quarter: 2013Q4

REPORT INFORMATION
  Report Type: Report from Study
  Country: BR (occurrence: BR)
  Receive Date: 20131003
  Receipt Date: 20131003
  Transmission Date: 20140711
  Serious: Yes (Other)
  Sender: FDA-Public Use
  Company Number: PHHY2013BR108002

PATIENT
  Sex: Female
  Weight: 82 kg

DRUGS (2)
  1. SANDOSTATIN LAR [Suspect]
     Indication: ADENOMA BENIGN
     Dosage: 20 MG, (1 AMPOULE) MONTLY
     Dates: start: 201109
  2. SANDOSTATIN LAR [Suspect]
     Dosage: 10 MG, (1 AMPOULE) MONTLY)

REACTIONS (4)
  - Labyrinthitis [Not Recovered/Not Resolved]
  - Feeling abnormal [Not Recovered/Not Resolved]
  - Somnolence [Not Recovered/Not Resolved]
  - Malaise [Not Recovered/Not Resolved]
